FAERS Safety Report 7764687-8 (Version None)
Quarter: 2011Q3

REPORT INFORMATION
  Report Type: 
  Country: None (occurrence: None)
  Receive Date: 20110921
  Receipt Date: 20110919
  Transmission Date: 20111222
  Serious: Yes (Hospitalization)
  Sender: FDA-Public Use
  Company Number: PHHY2011RU82407

PATIENT
  Age: 42 Year
  Sex: Female

DRUGS (1)
  1. EXTAVIA [Suspect]
     Dosage: UNK UKN, UNK
     Dates: start: 20100601

REACTIONS (6)
  - HYPOAESTHESIA [None]
  - PERIPHERAL COLDNESS [None]
  - CONSTIPATION [None]
  - MICTURITION URGENCY [None]
  - PNEUMONIA [None]
  - GENERAL PHYSICAL HEALTH DETERIORATION [None]
